FAERS Safety Report 9629420 (Version 1)
Quarter: 2013Q4

REPORT INFORMATION
  Report Type: Spontaneous
  Country: US (occurrence: US)
  Receive Date: 20131017
  Receipt Date: 20131017
  Transmission Date: 20140711
  Serious: No
  Sender: FDA-Public Use
  Company Number: US-ASTRAZENECA-2013SE52043

PATIENT
  Sex: Female

DRUGS (2)
  1. CRESTOR [Suspect]
     Indication: BLOOD CHOLESTEROL ABNORMAL
     Route: 048
     Dates: start: 2013, end: 20130709
  2. CRESTOR [Suspect]
     Indication: BLOOD CHOLESTEROL ABNORMAL
     Dosage: 0.5 OF 10 MG DAILY
     Route: 048
     Dates: start: 20130710

REACTIONS (3)
  - Fungal infection [Unknown]
  - Intentional drug misuse [Recovered/Resolved]
  - Off label use [Not Recovered/Not Resolved]
